FAERS Safety Report 8270683-7 (Version None)
Quarter: 2012Q2

REPORT INFORMATION
  Report Type: 
  Country: None (occurrence: None)
  Receive Date: 20120410
  Receipt Date: 20120327
  Transmission Date: 20120825
  Serious: Yes (Other)
  Sender: FDA-Public Use
  Company Number: US-ROCHE-1005557

PATIENT
  Sex: Female

DRUGS (3)
  1. BONIVA [Suspect]
     Indication: OSTEOPOROSIS
     Route: 065
     Dates: start: 20050101, end: 20080301
  2. ACTONEL [Suspect]
     Indication: OSTEOPOROSIS
     Route: 065
     Dates: start: 20080301, end: 20080901
  3. BONIVA [Suspect]
     Dates: start: 20110830

REACTIONS (6)
  - COMPRESSION FRACTURE [None]
  - ANXIETY [None]
  - SPINAL COLUMN STENOSIS [None]
  - TOOTH FRACTURE [None]
  - INTERVERTEBRAL DISC DEGENERATION [None]
  - OSTEONECROSIS OF JAW [None]
